FAERS Safety Report 23113667 (Version 2)
Quarter: 2024Q4

REPORT INFORMATION
  Report Type: Report from Study
  Country: CA (occurrence: CA)
  Receive Date: 20231027
  Receipt Date: 20241030
  Transmission Date: 20250115
  Serious: Yes (Other)
  Sender: SANDOZ
  Company Number: CA-SANDOZ-SDZ2023CA002796

PATIENT
  Sex: Male

DRUGS (3)
  1. PIRFENIDONE [Suspect]
     Active Substance: PIRFENIDONE
     Dosage: 267 MG, BID
     Route: 048
  2. PIRFENIDONE [Suspect]
     Active Substance: PIRFENIDONE
     Indication: Pulmonary fibrosis
     Dosage: 534 MG, BID
     Route: 048
     Dates: start: 20221105
  3. PIRFENIDONE [Suspect]
     Active Substance: PIRFENIDONE
     Dosage: DAILY
     Route: 048

REACTIONS (3)
  - Transplant [Unknown]
  - Pneumomediastinum [Unknown]
  - Off label use [Unknown]
